FAERS Safety Report 6913694-3 (Version None)
Quarter: 2010Q3

REPORT INFORMATION
  Report Type: 
  Country: None (occurrence: None)
  Receive Date: 20100719
  Receipt Date: 20090326
  Transmission Date: 20110219
  Serious: No
  Sender: FDA-Public Use
  Company Number: 2009-01062

PATIENT
  Age: 24 Year
  Sex: Male
  Weight: 79.3795 kg

DRUGS (2)
  1. ZICAM COLD REMEDY NASAL GEL [Suspect]
     Indication: NASOPHARYNGITIS
     Dosage: Q 4 HRS/8 DOSESX2 DAYS
     Dates: start: 20090321, end: 20090323
  2. ZICAM COLD REMEDY RAPIDMELTS WITH C+E [Suspect]
     Indication: NASOPHARYNGITIS
     Dosage: Q 3 HRS/10 DOSESX2 DAYS
     Dates: start: 20090323, end: 20090325

REACTIONS (1)
  - ANOSMIA [None]
